FAERS Safety Report 6284169-2 (Version None)
Quarter: 2009Q3

REPORT INFORMATION
  Report Type: 
  Country: None (occurrence: None)
  Receive Date: 20090723
  Receipt Date: 20090716
  Transmission Date: 20100115
  Serious: Yes (Other)
  Sender: FDA-Public Use
  Company Number: CHPA2009US15490

PATIENT
  Age: 71 Year
  Sex: Female
  Weight: 79.4 kg

DRUGS (5)
  1. BENEFIBER FIBER SUPP VIT B + FOLIC ACID (WHEAT DEXTRIN) POWDER [Suspect]
     Indication: MEDICAL DIET
     Dosage: 2 TSP, QD, ORAL
     Route: 048
     Dates: start: 20080801, end: 20090716
  2. LIPITOR [Concomitant]
  3. TENORMIN [Concomitant]
  4. AVAPRO [Concomitant]
  5. CALCIUM D (ASCORBIC ACID, CALCIUM GLUCONATE, CALCIUM LACTATE, CALCIUM [Concomitant]

REACTIONS (1)
  - BLOOD POTASSIUM INCREASED [None]
